FAERS Safety Report 7424372-9 (Version None)
Quarter: 2011Q2

REPORT INFORMATION
  Report Type: 
  Country: None (occurrence: None)
  Receive Date: 20110419
  Receipt Date: 20110414
  Transmission Date: 20111010
  Serious: Yes (Other)
  Sender: FDA-Public Use
  Company Number: US-CEPHALON-2011001128

PATIENT
  Sex: Female

DRUGS (4)
  1. ACYCLOVIR [Suspect]
  2. RITUXIMAB [Suspect]
     Dates: start: 20110214, end: 20110214
  3. DAPSONE [Suspect]
  4. TREANDA [Suspect]
     Indication: CHRONIC LYMPHOCYTIC LEUKAEMIA
     Route: 042
     Dates: start: 20110214, end: 20110215

REACTIONS (2)
  - RASH MACULO-PAPULAR [None]
  - RASH ERYTHEMATOUS [None]
